FAERS Safety Report 14015903 (Version 1)
Quarter: 2017Q3

REPORT INFORMATION
  Report Type: Spontaneous
  Country: CH (occurrence: CH)
  Receive Date: 20170927
  Receipt Date: 20170927
  Transmission Date: 20171128
  Serious: Yes (Other)
  Sender: FDA-Public Use
  Company Number: CH-SA-2017SA176468

PATIENT
  Age: 54 Year
  Sex: Male

DRUGS (3)
  1. FEXOFENADINE [Suspect]
     Active Substance: FEXOFENADINE\FEXOFENADINE HYDROCHLORIDE
     Route: 048
     Dates: start: 2017
  2. SEROPRAM [Interacting]
     Active Substance: CITALOPRAM HYDROBROMIDE
     Route: 048
  3. RED YEAST RICE [Suspect]
     Active Substance: DIETARY SUPPLEMENT
     Route: 048
     Dates: start: 2017

REACTIONS (7)
  - Bradycardia [Unknown]
  - Constipation [Unknown]
  - Drug interaction [Unknown]
  - Fatigue [Unknown]
  - Muscle spasms [Unknown]
  - Hyperhidrosis [Unknown]
  - Diarrhoea [Unknown]

NARRATIVE: CASE EVENT DATE: 2017
